FAERS Safety Report 16752007 (Version 1)
Quarter: 2019Q3

REPORT INFORMATION
  Report Type: Spontaneous
  Country: US (occurrence: US)
  Receive Date: 20190828
  Receipt Date: 20190828
  Transmission Date: 20191005
  Serious: Yes (Life-Threatening, Other)
  Sender: FDA-Public Use
  Company Number: US-MYLANLABS-2019M1080384

PATIENT
  Age: 43 Year
  Sex: Female
  Weight: 68.9 kg

DRUGS (4)
  1. CORLANOR [Interacting]
     Active Substance: IVABRADINE HYDROCHLORIDE
     Indication: PALPITATIONS
     Dosage: 5 MILLIGRAM, BID
     Route: 048
     Dates: start: 20181031, end: 20190728
  2. EPINEPHRINE. [Interacting]
     Active Substance: EPINEPHRINE
     Indication: ANAPHYLACTIC REACTION
  3. CORLANOR [Interacting]
     Active Substance: IVABRADINE HYDROCHLORIDE
     Indication: SINUS TACHYCARDIA
  4. EPINEPHRINE. [Suspect]
     Active Substance: EPINEPHRINE
     Indication: HYPERSENSITIVITY
     Dosage: UNK
     Route: 065
     Dates: start: 20190722, end: 20190722

REACTIONS (2)
  - Drug interaction [Recovered/Resolved]
  - Therapeutic product effect decreased [Recovered/Resolved]

NARRATIVE: CASE EVENT DATE: 20190722
